FAERS Safety Report 9899610 (Version 2)
Quarter: 2014Q3

REPORT INFORMATION
  Report Type: Spontaneous
  Country: US (occurrence: US)
  Receive Date: 20140214
  Receipt Date: 20140813
  Transmission Date: 20150326
  Serious: Yes (Hospitalization, Other)
  Sender: FDA-Public Use
  Company Number: US-009507513-1402USA006642

PATIENT
  Sex: Female

DRUGS (10)
  1. AMBIEN [Concomitant]
     Active Substance: ZOLPIDEM TARTRATE
  2. PRILOSEC [Concomitant]
     Active Substance: OMEPRAZOLE MAGNESIUM
  3. REVATIO [Concomitant]
     Active Substance: SILDENAFIL CITRATE
     Dosage: 20 MG, BID
     Route: 048
  4. NUVARING [Suspect]
     Active Substance: ETHINYL ESTRADIOL\ETONOGESTREL
     Indication: CONTRACEPTION
     Dosage: 1 NEW VAGINAL RING MONTHLY
     Route: 067
     Dates: start: 20090928, end: 200912
  5. PROVENTIL [Concomitant]
     Active Substance: ALBUTEROL
  6. ADVAIR HFA [Concomitant]
     Active Substance: FLUTICASONE PROPIONATE\SALMETEROL XINAFOATE
     Dosage: 1 PUFF BID
  7. PROCARDIA [Concomitant]
     Active Substance: NIFEDIPINE
  8. SOMA [Concomitant]
     Active Substance: CARISOPRODOL
     Dosage: 350 MG, QD
     Route: 048
  9. NASONEX [Concomitant]
     Active Substance: MOMETASONE FUROATE
  10. PROZAC [Concomitant]
     Active Substance: FLUOXETINE HYDROCHLORIDE

REACTIONS (21)
  - Calcinosis [Unknown]
  - Pulmonary hypertension [Recovering/Resolving]
  - Scleroderma associated digital ulcer [Unknown]
  - Knee operation [Unknown]
  - Raynaud^s phenomenon [Unknown]
  - Asthma [Unknown]
  - Pulmonary embolism [Recovered/Resolved]
  - Pulmonary fibrosis [Unknown]
  - Blood urine present [Unknown]
  - CREST syndrome [Unknown]
  - Anxiety [Unknown]
  - Uterine leiomyoma [Unknown]
  - Limb operation [Unknown]
  - Uterine dilation and curettage [Unknown]
  - Depression [Unknown]
  - Scleroderma [Unknown]
  - Gravitational oedema [Recovered/Resolved]
  - Pulmonary mass [Unknown]
  - Hypertension [Unknown]
  - Cholecystectomy [Unknown]
  - Limb injury [Recovered/Resolved with Sequelae]

NARRATIVE: CASE EVENT DATE: 20091130
